FAERS Safety Report 17861191 (Version 2)
Quarter: 2022Q2

REPORT INFORMATION
  Report Type: Report from Study
  Country: US (occurrence: US)
  Receive Date: 20200604
  Receipt Date: 20220513
  Transmission Date: 20220721
  Serious: No
  Sender: FDA-Public Use
  Company Number: US-HARMONY BIOSCIENCES-2020HMY00180

PATIENT
  Age: 76 Year
  Sex: Female

DRUGS (2)
  1. WAKIX [Suspect]
     Active Substance: PITOLISANT HYDROCHLORIDE
     Indication: Narcolepsy
     Dosage: 35.6 MG, ONCE DAILY
     Route: 048
     Dates: start: 201911
  2. DRAMAMINE [Suspect]
     Active Substance: DIMENHYDRINATE
     Indication: Motion sickness

REACTIONS (3)
  - Motion sickness [Not Recovered/Not Resolved]
  - Lethargy [Unknown]
  - Drug ineffective [Not Recovered/Not Resolved]

NARRATIVE: CASE EVENT DATE: 20191101
